FAERS Safety Report 7466132-9 (Version None)
Quarter: 2011Q2

REPORT INFORMATION
  Report Type: 
  Country: None (occurrence: None)
  Receive Date: 20110509
  Receipt Date: 20110425
  Transmission Date: 20111010
  Serious: Yes (Hospitalization)
  Sender: FDA-Public Use
  Company Number: US-ALEXION-A201000709

PATIENT
  Sex: Female
  Weight: 56.236 kg

DRUGS (7)
  1. MULTI-VITAMINS [Concomitant]
     Dosage: UNK
  2. TYLENOL (CAPLET) [Concomitant]
     Indication: PREMEDICATION
     Dosage: UNK
     Dates: start: 20100819
  3. SOLIRIS [Suspect]
     Indication: PAROXYSMAL NOCTURNAL HAEMOGLOBINURIA
     Dosage: 600 MG, QW
     Route: 042
     Dates: start: 20080819, end: 20080919
  4. BENADRYL [Concomitant]
     Indication: PREMEDICATION
     Dosage: 25 MG, UNK
     Dates: start: 20080819
  5. SOLIRIS [Suspect]
     Dosage: 900 MG, Q2W
     Route: 042
     Dates: start: 20080916, end: 20090917
  6. SOLIRIS [Suspect]
     Dosage: 900 MG, Q12D
     Route: 042
     Dates: start: 20090929
  7. FOLIC ACID [Concomitant]
     Dosage: 1 MG, UNK
     Route: 048

REACTIONS (7)
  - CONDITION AGGRAVATED [None]
  - NAUSEA [None]
  - ABDOMINAL PAIN [None]
  - LEUKOPENIA [None]
  - CEREBROVASCULAR ACCIDENT [None]
  - PYREXIA [None]
  - ANAEMIA [None]
